FAERS Safety Report 5840673-X (Version None)
Quarter: 2008Q3

REPORT INFORMATION
  Report Type: 
  Country: None (occurrence: None)
  Receive Date: 20080811
  Receipt Date: 20080804
  Transmission Date: 20090109
  Serious: Yes (Hospitalization)
  Sender: FDA-Public Use
  Company Number: PHBS2008GB05280

PATIENT
  Age: 23 Year
  Sex: Female

DRUGS (7)
  1. DICLOFENAC SODIUM [Suspect]
     Indication: BACK PAIN
     Dosage: 100 MG, QD
     Route: 054
  2. DICLOFENAC SODIUM [Suspect]
     Dosage: 50 MG, Q12H
     Route: 048
  3. ACETAMINOPHEN AND CODEINE PHOSPHATE [Suspect]
     Indication: BACK PAIN
     Dosage: 1-2 TAB Q6H
     Route: 048
  4. TRAMADOL HCL [Suspect]
     Indication: BACK PAIN
     Dosage: 50-100 MG Q6H
     Route: 048
  5. MEPERIDINE HCL [Suspect]
     Indication: BACK PAIN
     Dosage: 50-100 MG Q6H
     Route: 030
  6. BUPIVACAINE W/FENTANYL [Suspect]
     Indication: BACK PAIN
     Dosage: UNK
  7. ANALGESICS [Suspect]
     Route: 008

REACTIONS (6)
  - BACK PAIN [None]
  - DRUG EXPOSURE DURING PREGNANCY [None]
  - FALL [None]
  - NORMAL NEWBORN [None]
  - PREMATURE RUPTURE OF MEMBRANES [None]
  - UTERINE CONTRACTIONS DURING PREGNANCY [None]
